FAERS Safety Report 4694430-0 (Version None)
Quarter: 2005Q2

REPORT INFORMATION
  Report Type: 
  Country: None (occurrence: None)
  Receive Date: 20050620
  Receipt Date: 20050606
  Transmission Date: 20051028
  Serious: Yes (Hospitalization)
  Sender: FDA-Public Use
  Company Number: US-JNJFOC-20050602342

PATIENT
  Sex: Female
  Weight: 81.19 kg

DRUGS (2)
  1. ORTHO EVRA [Suspect]
     Indication: CONTRACEPTION
     Route: 062
     Dates: start: 20050401
  2. HYDROCODONE BITARTRATE [Concomitant]
     Indication: PAIN
     Dosage: 1/2 TAB 3 IN 1 DAY

REACTIONS (1)
  - CELLULITIS [None]
